FAERS Safety Report 5122445-7 (Version None)
Quarter: 2006Q4

REPORT INFORMATION
  Report Type: 
  Country: None (occurrence: None)
  Receive Date: 20061005
  Receipt Date: 20060928
  Transmission Date: 20070319
  Serious: Yes (Other)
  Sender: FDA-Public Use
  Company Number: TPA2006A01659

PATIENT
  Age: 48 Year
  Sex: Male

DRUGS (4)
  1. ACTOS [Suspect]
     Dosage: PER ORAL
     Route: 048
  2. TOPROL-XL [Concomitant]
  3. GLYBURIDE [Concomitant]
  4. ENALAPRIL MALEATE [Concomitant]

REACTIONS (3)
  - CEREBROVASCULAR ACCIDENT [None]
  - DIABETES MELLITUS NON-INSULIN-DEPENDENT [None]
  - HYPERTENSION [None]
